FAERS Safety Report 26035212 (Version 1)
Quarter: 2025Q4

REPORT INFORMATION
  Report Type: Spontaneous
  Country: BR (occurrence: BR)
  Receive Date: 20251112
  Receipt Date: 20251112
  Transmission Date: 20260118
  Serious: Yes (Life-Threatening, Hospitalization, Other)
  Sender: BRACCO
  Company Number: BR-BRACCO-2025BR07868

PATIENT
  Age: 68 Year
  Sex: Female

DRUGS (5)
  1. PROHANCE [Suspect]
     Active Substance: GADOTERIDOL
     Indication: Magnetic resonance imaging head
     Dosage: 14 ML, SINGLE
     Route: 042
     Dates: start: 20251031, end: 20251031
  2. BILASTINE [Concomitant]
     Active Substance: BILASTINE
  3. NEBIVOLOL [Concomitant]
     Active Substance: NEBIVOLOL
  4. BENSERAZIDE\LEVODOPA [Concomitant]
     Active Substance: BENSERAZIDE\LEVODOPA
  5. URSODIOL [Concomitant]
     Active Substance: URSODIOL

REACTIONS (6)
  - Loss of consciousness [Unknown]
  - Respiratory distress [Unknown]
  - Pulse absent [Unknown]
  - Malaise [Unknown]
  - Hyporesponsive to stimuli [Unknown]
  - Cerebral congestion [Unknown]

NARRATIVE: CASE EVENT DATE: 20251031
